FAERS Safety Report 9242055 (Version 2)
Quarter: 2014Q2

REPORT INFORMATION
  Report Type: Report from Study
  Country: FR (occurrence: FR)
  Receive Date: 20130419
  Receipt Date: 20140613
  Transmission Date: 20141212
  Serious: Yes (Other)
  Sender: FDA-Public Use
  Company Number: FR-ROCHE-1215503

PATIENT
  Age: 11 Year
  Sex: Female

DRUGS (1)
  1. SOMATROPIN [Suspect]
     Indication: GROWTH HORMONE DEFICIENCY
     Route: 065
     Dates: start: 20070503

REACTIONS (2)
  - Scoliosis [Recovered/Resolved]
  - Arthrodesis [Recovered/Resolved]
